FAERS Safety Report 11062578 (Version 1)
Quarter: 2015Q2

REPORT INFORMATION
  Report Type: Spontaneous
  Country: IR (occurrence: None)
  Receive Date: 20150422
  Receipt Date: 20150422
  Transmission Date: 20150821
  Serious: Yes (Life-Threatening, Hospitalization)
  Sender: FDA-Public Use
  Company Number: NSR_02048_2015

PATIENT
  Age: 22 Year
  Sex: Male

DRUGS (1)
  1. TRAMADOL (TRAMADOL) [Suspect]
     Active Substance: TRAMADOL
     Indication: PRODUCT USED FOR UNKNOWN INDICATION
     Dosage: 100 DF (10,000 MG [NOT THE PRESCRIBED AMOUNT])

REACTIONS (19)
  - Drug abuse [None]
  - Cyanosis [None]
  - Acute kidney injury [None]
  - Haemoglobin decreased [None]
  - Seizure [None]
  - Dizziness [None]
  - Pulmonary oedema [None]
  - Aspartate aminotransferase increased [None]
  - Alanine aminotransferase increased [None]
  - Restlessness [None]
  - Dyspnoea [None]
  - Intentional overdose [None]
  - Blood alkaline phosphatase increased [None]
  - Blood pressure increased [None]
  - Respiratory distress [None]
  - Haemodialysis [None]
  - Toxicity to various agents [None]
  - Coma [None]
  - Mydriasis [None]
